FAERS Safety Report 6490767-3 (Version None)
Quarter: 2009Q4

REPORT INFORMATION
  Report Type: 
  Country: None (occurrence: None)
  Receive Date: 20091124
  Receipt Date: 20090504
  Transmission Date: 20100525
  Serious: Yes (Death)
  Sender: FDA-Public Use
  Company Number: 282500

PATIENT
  Age: 55 Year
  Sex: Female

DRUGS (4)
  1. HERCEPTIN [Suspect]
     Indication: BREAST CANCER METASTATIC
     Dates: start: 20030101
  2. ADRIAMYCIN PFS [Suspect]
     Indication: BREAST CANCER METASTATIC
     Dates: start: 20011001, end: 20030101
  3. CHEMOTHERAPY DRUG NOS (ANTINEOPLASTIC AGENT NOS) [Concomitant]
  4. STEROID [Concomitant]

REACTIONS (2)
  - DISEASE PROGRESSION [None]
  - RASH [None]
